FAERS Safety Report 7232445-9 (Version None)
Quarter: 2011Q1

REPORT INFORMATION
  Report Type: 
  Country: None (occurrence: None)
  Receive Date: 20110119
  Receipt Date: 20110115
  Transmission Date: 20110831
  Serious: No
  Sender: FDA-Public Use
  Company Number: US-PFIZER INC-2007007394

PATIENT
  Sex: Female
  Weight: 77.098 kg

DRUGS (4)
  1. CRESTOR [Concomitant]
  2. CHANTIX [Suspect]
     Dosage: INTERVAL: EVERY DAY
     Route: 048
     Dates: start: 20061201
  3. ESTRADIOL [Concomitant]
  4. CHANTIX [Suspect]
     Dosage: UNK
     Route: 048

REACTIONS (3)
  - MUSCLE STRAIN [None]
  - PAIN IN EXTREMITY [None]
  - OEDEMA PERIPHERAL [None]
